FAERS Safety Report 10988646 (Version 2)
Quarter: 2015Q2

REPORT INFORMATION
  Report Type: Spontaneous
  Country: US (occurrence: US)
  Receive Date: 20150404
  Receipt Date: 20150525
  Transmission Date: 20150821
  Serious: Yes (Other)
  Sender: FDA-Public Use
  Company Number: US-JNJFOC-20150205621

PATIENT
  Age: 75 Year
  Sex: Female
  Weight: 54.43 kg

DRUGS (1)
  1. REMICADE [Suspect]
     Active Substance: INFLIXIMAB
     Indication: RHEUMATOID ARTHRITIS
     Dosage: 2 VIALS
     Route: 042
     Dates: start: 2007

REACTIONS (7)
  - Weight decreased [Not Recovered/Not Resolved]
  - Body height decreased [Unknown]
  - Blood glucose increased [Recovered/Resolved]
  - Osteoporosis [Not Recovered/Not Resolved]
  - Helicobacter infection [Unknown]
  - Peripheral swelling [Unknown]
  - Abdominal pain [Recovered/Resolved]

NARRATIVE: CASE EVENT DATE: 2011
